FAERS Safety Report 6377465-1 (Version None)
Quarter: 2009Q3

REPORT INFORMATION
  Report Type: 
  Country: None (occurrence: None)
  Receive Date: 20090925
  Receipt Date: 20090922
  Transmission Date: 20100115
  Serious: Yes (Hospitalization)
  Sender: FDA-Public Use
  Company Number: US-BAYER-200929677NA

PATIENT
  Age: 70 Year
  Sex: Female
  Weight: 57 kg

DRUGS (6)
  1. AVELOX [Suspect]
     Indication: INFECTION
     Dosage: TOTAL DAILY DOSE: 400 MG  UNIT DOSE: 400 MG
     Dates: start: 20090810
  2. ADVAIR DISKUS 100/50 [Concomitant]
     Dosage: 300/50
  3. MIACALCIN [Concomitant]
     Route: 045
  4. ASPIRIN [Concomitant]
     Dosage: 81 MG X2
  5. NIACIN [Concomitant]
     Dosage: 500 MG X2
  6. FORTICAL [Concomitant]

REACTIONS (12)
  - BLOOD POTASSIUM DECREASED [None]
  - BLOOD PRESSURE DECREASED [None]
  - DRY MOUTH [None]
  - DYSPNOEA [None]
  - FUNGAL INFECTION [None]
  - HYPERSENSITIVITY [None]
  - NAUSEA [None]
  - PARAESTHESIA [None]
  - PRURITUS [None]
  - RASH [None]
  - TREMOR [None]
  - URTICARIA [None]
